FAERS Safety Report 21785911 (Version 1)
Quarter: 2022Q4

REPORT INFORMATION
  Report Type: Spontaneous
  Country: US (occurrence: None)
  Receive Date: 20221228
  Receipt Date: 20221228
  Transmission Date: 20230113
  Serious: No
  Sender: FDA-Public Use
  Company Number: 2022A412807

PATIENT
  Sex: Female
  Weight: 90.7 kg

DRUGS (1)
  1. SYMBICORT [Suspect]
     Active Substance: BUDESONIDE\FORMOTEROL FUMARATE DIHYDRATE
     Indication: Asthma-chronic obstructive pulmonary disease overlap syndrome
     Dosage: 160/4.5 MCG 120 DOSE INHALER 2 PUFFS TWICE
     Route: 055

REACTIONS (5)
  - Diabetes mellitus [Unknown]
  - Thrombosis [Unknown]
  - Hypertension [Unknown]
  - Wrong technique in product usage process [Unknown]
  - Condition aggravated [Unknown]
